FAERS Safety Report 7883426-3 (Version None)
Quarter: 2011Q4

REPORT INFORMATION
  Report Type: 
  Country: None (occurrence: None)
  Receive Date: 20111102
  Receipt Date: 20111027
  Transmission Date: 20120403
  Serious: Yes (Other)
  Sender: FDA-Public Use
  Company Number: GB-JNJFOC-20110904480

PATIENT
  Sex: Male

DRUGS (1)
  1. PALIPERIDONE [Suspect]
     Indication: PSYCHOTIC DISORDER
     Route: 030
     Dates: start: 20110718, end: 20110909

REACTIONS (2)
  - PSYCHOTIC DISORDER [None]
  - AGGRESSION [None]
